APPROVED DRUG PRODUCT: ATRACURIUM BESYLATE PRESERVATIVE FREE
Active Ingredient: ATRACURIUM BESYLATE
Strength: 10MG/ML
Dosage Form/Route: INJECTABLE;INJECTION
Application: A206010 | Product #001
Applicant: EUGIA PHARMA SPECIALITIES LTD
Approved: Apr 8, 2015 | RLD: No | RS: No | Type: DISCN